FAERS Safety Report 7557066-X (Version None)
Quarter: 2011Q2

REPORT INFORMATION
  Report Type: 
  Country: None (occurrence: None)
  Receive Date: 20110616
  Receipt Date: 20110616
  Transmission Date: 20111010
  Serious: Yes (Other)
  Sender: FDA-Public Use
  Company Number: None

PATIENT
  Age: 50 Year
  Sex: Male
  Weight: 88.4514 kg

DRUGS (1)
  1. ZETIA [Suspect]
     Indication: BLOOD CHOLESTEROL INCREASED
     Dosage: 1 PILL DAILY PO
     Route: 048
     Dates: start: 20110613, end: 20110615

REACTIONS (10)
  - INSOMNIA [None]
  - MUSCULAR WEAKNESS [None]
  - COUGH [None]
  - ARTHRALGIA [None]
  - PAIN IN EXTREMITY [None]
  - EYE HAEMORRHAGE [None]
  - DIZZINESS [None]
  - HALLUCINATION [None]
  - GASTRIC PH DECREASED [None]
  - ABDOMINAL DISCOMFORT [None]
